FAERS Safety Report 9498308 (Version 1)
Quarter: 2013Q3

REPORT INFORMATION
  Report Type: Spontaneous
  Country: US (occurrence: US)
  Receive Date: 20130904
  Receipt Date: 20130904
  Transmission Date: 20140515
  Serious: Yes (Death)
  Sender: FDA-Public Use
  Company Number: US-CELGENEUS-163-21880-13084247

PATIENT
  Sex: Female
  Weight: 50.6 kg

DRUGS (6)
  1. REVLIMID [Suspect]
     Indication: MALIGNANT ANORECTAL NEOPLASM
     Dosage: 15 MILLIGRAM
     Route: 048
     Dates: start: 20120809
  2. DILAUDID [Concomitant]
     Indication: PAIN
     Dosage: 2-4MG
     Route: 065
  3. LEVSIN [Concomitant]
     Indication: BLADDER SPASM
     Dosage: .125 MILLIGRAM
     Route: 065
  4. RITALIN [Concomitant]
     Indication: PRODUCT USED FOR UNKNOWN INDICATION
     Dosage: 2.5MG OR 5MG
     Route: 065
  5. MIRALAX [Concomitant]
     Indication: CONSTIPATION
     Dosage: 17 GRAM
     Route: 048
  6. DULCOLAX [Concomitant]
     Indication: PRODUCT USED FOR UNKNOWN INDICATION
     Dosage: 2 TO 4 TABLETS
     Route: 065

REACTIONS (2)
  - Death [Fatal]
  - Malignant anorectal neoplasm [Unknown]
